FAERS Safety Report 10974161 (Version 2)
Quarter: 2015Q1

REPORT INFORMATION
  Report Type: Spontaneous
  Country: US (occurrence: None)
  Receive Date: 20150226
  Receipt Date: 20150226
  Transmission Date: 20150721
  Serious: No
  Sender: FDA-Public Use
  Company Number: TAP2009Q00325

PATIENT
  Age: 59 Year
  Sex: Male
  Weight: 140.62 kg

DRUGS (6)
  1. METOPROLOL [Concomitant]
     Active Substance: METOPROLOL
  2. DOXYCYCLINE. [Concomitant]
     Active Substance: DOXYCYCLINE
  3. ULORIC [Suspect]
     Active Substance: FEBUXOSTAT
     Indication: GOUT
     Route: 048
     Dates: start: 20090318
  4. BENICAR [Concomitant]
     Active Substance: OLMESARTAN MEDOXOMIL
  5. HORSE CHESTNUT EXTRACT (AESCULUS HIPPOCASTANUM EXTRACT) [Concomitant]
  6. LASIX [Concomitant]
     Active Substance: FUROSEMIDE

REACTIONS (3)
  - Blood pressure increased [None]
  - Blood glucose decreased [None]
  - Gout [None]

NARRATIVE: CASE EVENT DATE: 20090319
